FAERS Safety Report 4876429-4 (Version None)
Quarter: 2005Q4

REPORT INFORMATION
  Report Type: 
  Country: None (occurrence: None)
  Receive Date: 20051206
  Receipt Date: 20050830
  Transmission Date: 20060501
  Serious: Yes (Hospitalization)
  Sender: FDA-Public Use
  Company Number: USA0508106575

PATIENT
  Age: 31 Year
  Sex: Male
  Weight: 182 kg

DRUGS (5)
  1. CYMBALTA [Suspect]
     Indication: DEPRESSION
     Dosage: 60 MG
     Dates: start: 20050601, end: 20050801
  2. PERCOCET [Concomitant]
  3. MONOPRIL [Concomitant]
  4. MORPHINE [Concomitant]
  5. SOMA [Concomitant]

REACTIONS (2)
  - DRUG DEPENDENCE [None]
  - SUICIDE ATTEMPT [None]
